FAERS Safety Report 7934208-5 (Version None)
Quarter: 2011Q4

REPORT INFORMATION
  Report Type: 
  Country: None (occurrence: None)
  Receive Date: 20111122
  Receipt Date: 20111117
  Transmission Date: 20120403
  Serious: Yes (Other)
  Sender: FDA-Public Use
  Company Number: SE-PFIZER INC-2011281523

PATIENT
  Age: 75 Year
  Sex: Female

DRUGS (7)
  1. TOLTERODINE TARTRATE [Suspect]
     Dosage: 4 MG, UNK
  2. INOLAXOL [Concomitant]
     Dosage: UNK
  3. BISOPROLOL FUMARATE [Concomitant]
     Dosage: UNK
  4. DIDRONEL [Concomitant]
     Dosage: UNK
  5. LAXOBERAL [Concomitant]
     Dosage: UNK
  6. LACTULOSE [Concomitant]
     Dosage: UNK
  7. KLYX [Concomitant]
     Dosage: UNK

REACTIONS (1)
  - HYPONATRAEMIA [None]
